FAERS Safety Report 7391179-0 (Version None)
Quarter: 2011Q2

REPORT INFORMATION
  Report Type: 
  Country: None (occurrence: None)
  Receive Date: 20110404
  Receipt Date: 20100608
  Transmission Date: 20111010
  Serious: Yes (Other)
  Sender: FDA-Public Use
  Company Number: US-PFIZER INC-2010073503

PATIENT
  Sex: Male
  Weight: 72.562 kg

DRUGS (3)
  1. ZOLOFT [Suspect]
     Indication: DEPRESSION
     Dosage: 100 MG, 1X/DAY
     Route: 048
     Dates: start: 19900101
  2. ZOLOFT [Suspect]
     Dosage: 200 MG, 1X/DAY
     Route: 048
     Dates: end: 20081101
  3. ZOLOFT [Suspect]
     Dosage: 100 MG, UNK
     Route: 048
     Dates: start: 20091101

REACTIONS (3)
  - CONFUSIONAL STATE [None]
  - DEPRESSION [None]
  - DRUG INEFFECTIVE [None]
